FAERS Safety Report 9286257 (Version 1)
Quarter: 2013Q2

REPORT INFORMATION
  Report Type: Spontaneous
  Country: CH (occurrence: CH)
  Receive Date: 20130513
  Receipt Date: 20130513
  Transmission Date: 20140414
  Serious: Yes (Other)
  Sender: FDA-Public Use
  Company Number: CH-GLAXOSMITHKLINE-B0890892A

PATIENT
  Sex: Female
  Weight: 62 kg

DRUGS (3)
  1. PAROXETIN [Suspect]
     Indication: BIPOLAR DISORDER
     Dosage: 20MG PER DAY
     Route: 048
     Dates: start: 2008, end: 2012
  2. ELTROXIN [Concomitant]
     Dosage: 50MCG PER DAY
     Route: 048
  3. TEMESTA [Concomitant]
     Dosage: 1UD AS REQUIRED
     Route: 048

REACTIONS (1)
  - Alcohol problem [Recovered/Resolved]
